FAERS Safety Report 9643502 (Version 3)
Quarter: 2014Q1

REPORT INFORMATION
  Report Type: Spontaneous
  Country: IT (occurrence: None)
  Receive Date: 20131022
  Receipt Date: 20140204
  Transmission Date: 20141002
  Serious: Yes (Hospitalization)
  Sender: FDA-Public Use
  Company Number: AUR-APL-2013-08647

PATIENT
  Age: 75 Year
  Sex: Female

DRUGS (4)
  1. SERTRALINE [Suspect]
     Indication: ANXIETY
     Route: 048
     Dates: start: 20130625, end: 20130627
  2. GABAPENTIN (GABAPENTIN) [Concomitant]
  3. LORAZEPAM (LORAZEPAM) [Concomitant]
  4. PROMAZINE HYDROCHLORIDE (PROMAZINE HYDROCHLORIDE) [Concomitant]

REACTIONS (4)
  - Dyspnoea [None]
  - Psychomotor hyperactivity [None]
  - Vertigo [None]
  - Aspartate aminotransferase increased [None]
